FAERS Safety Report 8295602-9 (Version None)
Quarter: 2012Q2

REPORT INFORMATION
  Report Type: 
  Country: None (occurrence: None)
  Receive Date: 20120413
  Receipt Date: 20120413
  Transmission Date: 20120825
  Serious: No
  Sender: FDA-Public Use
  Company Number: None

PATIENT
  Age: 50 Year
  Sex: Female

DRUGS (3)
  1. DOCETAXEL [Suspect]
     Indication: LIVER INJURY
     Dates: start: 20101020, end: 20101020
  2. CARBOPLATIN [Suspect]
     Indication: LIVER INJURY
     Dates: start: 20101020, end: 20101020
  3. NITROFURANTOIN [Suspect]
     Indication: LIVER INJURY
     Dates: start: 20101031, end: 20101104

REACTIONS (12)
  - VOMITING [None]
  - ALANINE AMINOTRANSFERASE INCREASED [None]
  - URINARY TRACT INFECTION [None]
  - LIVER INJURY [None]
  - RASH PAPULAR [None]
  - HAEMANGIOMA OF LIVER [None]
  - NAUSEA [None]
  - FATIGUE [None]
  - DIARRHOEA HAEMORRHAGIC [None]
  - CAECITIS [None]
  - ASPARTATE AMINOTRANSFERASE INCREASED [None]
  - ABDOMINAL PAIN [None]
